FAERS Safety Report 4578336-3 (Version None)
Quarter: 2005Q1

REPORT INFORMATION
  Report Type: 
  Country: None (occurrence: None)
  Receive Date: 20050211
  Receipt Date: 20050204
  Transmission Date: 20050727
  Serious: Yes (Other)
  Sender: FDA-Public Use
  Company Number: 200511135GDDC

PATIENT
  Age: 60 Year
  Sex: Female
  Weight: 58.7 kg

DRUGS (2)
  1. ARAVA [Suspect]
     Indication: ARTHRITIS
     Route: 048
     Dates: end: 20041208
  2. LOSEC [Concomitant]
     Indication: BARRETT'S OESOPHAGUS
     Dosage: DOSE: UNK

REACTIONS (3)
  - LIVER FUNCTION TEST ABNORMAL [None]
  - RASH [None]
  - WHITE BLOOD CELL COUNT DECREASED [None]
